FAERS Safety Report 4618708-1 (Version None)
Quarter: 2005Q1

REPORT INFORMATION
  Report Type: 
  Country: None (occurrence: None)
  Receive Date: 20050324
  Receipt Date: 20050303
  Transmission Date: 20050727
  Serious: Yes (Other)
  Sender: FDA-Public Use
  Company Number: USA050291293

PATIENT
  Age: 12 Year
  Sex: Male
  Weight: 77 kg

DRUGS (4)
  1. STRATTERA [Suspect]
     Dosage: 10 MG DAY
  2. RISPERDAL [Concomitant]
  3. TRILEPTAL [Concomitant]
  4. NEXIUM [Concomitant]

REACTIONS (3)
  - ATRIOVENTRICULAR BLOCK FIRST DEGREE [None]
  - BLOOD TRIGLYCERIDES INCREASED [None]
  - HIGH DENSITY LIPOPROTEIN DECREASED [None]
